FAERS Safety Report 5857384-7 (Version None)
Quarter: 2008Q3

REPORT INFORMATION
  Report Type: 
  Country: None (occurrence: None)
  Receive Date: 20080825
  Receipt Date: 20080825
  Transmission Date: 20090109
  Serious: No
  Sender: FDA-Public Use
  Company Number: None

PATIENT
  Age: 1 Year
  Sex: Male
  Weight: 11 kg

DRUGS (1)
  1. CHILDREN'S TRIAMINIC SYRUP, CHEST AND NSAL CONJESTION  GUAIFENESIN, 50 [Suspect]
     Indication: NASAL DECONGESTION THERAPY
     Dates: start: 20080821, end: 20080821

REACTIONS (1)
  - MEDICATION ERROR [None]
